FAERS Safety Report 5309747-6 (Version None)
Quarter: 2007Q2

REPORT INFORMATION
  Report Type: 
  Country: None (occurrence: None)
  Receive Date: 20070427
  Receipt Date: 20060627
  Transmission Date: 20071010
  Serious: No
  Sender: FDA-Public Use
  Company Number: US-GLAXOSMITHKLINE-A0610510A

PATIENT
  Age: 40 Year
  Sex: Female

DRUGS (4)
  1. ZOFRAN [Suspect]
     Dosage: 4MG THREE TIMES PER DAY
     Route: 048
     Dates: start: 20060527, end: 20060603
  2. OXYCODONE HCL [Concomitant]
  3. BACLOFEN [Concomitant]
  4. UNKNOWN MEDICATION [Concomitant]

REACTIONS (1)
  - HEADACHE [None]
